FAERS Safety Report 6919252-9 (Version None)
Quarter: 2010Q3

REPORT INFORMATION
  Report Type: 
  Country: None (occurrence: None)
  Receive Date: 20100810
  Receipt Date: 20100810
  Transmission Date: 20110219
  Serious: Yes (Life-Threatening, Hospitalization)
  Sender: FDA-Public Use
  Company Number: None

PATIENT
  Age: 56 Year
  Sex: Female
  Weight: 100 kg

DRUGS (2)
  1. REMICADE [Suspect]
     Indication: CROHN'S DISEASE
     Dosage: 600 MG IV Q8WEEKS
     Route: 042
     Dates: end: 20100707
  2. MERCAPTOPURINE [Suspect]

REACTIONS (3)
  - INTESTINAL PERFORATION [None]
  - MYOCARDIAL INFARCTION [None]
  - SEPTIC SHOCK [None]
